FAERS Safety Report 23210020 (Version 1)
Quarter: 2023Q4

REPORT INFORMATION
  Report Type: Spontaneous
  Country: US (occurrence: US)
  Receive Date: 20231121
  Receipt Date: 20231121
  Transmission Date: 20240109
  Serious: Yes (Life-Threatening, Hospitalization)
  Sender: FDA-Public Use
  Company Number: US-STRIDES ARCOLAB LIMITED-2023SP017257

PATIENT
  Age: 23 Year
  Sex: Female

DRUGS (18)
  1. PREDNISOLONE [Suspect]
     Active Substance: PREDNISOLONE
     Indication: Immunosuppressant drug therapy
     Dosage: UNK; LOW-DOSE
     Route: 065
  2. PREDNISOLONE [Suspect]
     Active Substance: PREDNISOLONE
     Indication: Heart transplant
     Dosage: UNK, CYCLICAL; R-EPOCH REGIMEN; RECEIVED 4 CYCLES
     Route: 065
  3. PREDNISOLONE [Suspect]
     Active Substance: PREDNISOLONE
     Indication: Renal transplant
     Dosage: 5 MILLIGRAM; PER DAY
     Route: 065
  4. PREDNISOLONE [Suspect]
     Active Substance: PREDNISOLONE
     Indication: Post transplant lymphoproliferative disorder
  5. DOXORUBICIN [Suspect]
     Active Substance: DOXORUBICIN
     Indication: Post transplant lymphoproliferative disorder
     Dosage: UNK, CYCLICAL; R-EPOCH REGIMEN; RECEIVED 4 CYCLES
     Route: 065
  6. ETOPOSIDE [Suspect]
     Active Substance: ETOPOSIDE
     Indication: Post transplant lymphoproliferative disorder
     Dosage: UNK, CYCLICAL; R-EPOCH REGIMEN; RECEIVED 4 CYCLES
     Route: 065
  7. CARBOPLATIN [Suspect]
     Active Substance: CARBOPLATIN
     Indication: Post transplant lymphoproliferative disorder
     Dosage: UNK
     Route: 065
  8. TACROLIMUS [Suspect]
     Active Substance: TACROLIMUS
     Indication: Immunosuppressant drug therapy
     Dosage: UNK; TACROLIMUS WITH A GOAL OF 4 TO 6 NG/ML
     Route: 065
  9. TACROLIMUS [Suspect]
     Active Substance: TACROLIMUS
     Indication: Heart transplant
  10. TACROLIMUS [Suspect]
     Active Substance: TACROLIMUS
     Indication: Renal transplant
  11. MYCOPHENOLIC ACID [Suspect]
     Active Substance: MYCOPHENOLIC ACID
     Indication: Immunosuppressant drug therapy
     Dosage: UNK
     Route: 065
  12. MYCOPHENOLIC ACID [Suspect]
     Active Substance: MYCOPHENOLIC ACID
     Indication: Heart transplant
  13. MYCOPHENOLIC ACID [Suspect]
     Active Substance: MYCOPHENOLIC ACID
     Indication: Renal transplant
  14. RITUXIMAB [Suspect]
     Active Substance: RITUXIMAB
     Indication: Post transplant lymphoproliferative disorder
     Dosage: UNK, CYCLICAL; R-EPOCH REGIMEN; RECEIVED 4 CYCLES
     Route: 065
  15. VINCRISTINE [Suspect]
     Active Substance: VINCRISTINE
     Indication: Post transplant lymphoproliferative disorder
     Dosage: UNK, CYCLICAL; R-EPOCH REGIMEN; RECEIVED 4 CYCLES; VINCRISTINE WAS HELD FOR CYCLES 1, 2, AND 4,
     Route: 065
  16. CYCLOPHOSPHAMIDE [Suspect]
     Active Substance: CYCLOPHOSPHAMIDE
     Indication: Post transplant lymphoproliferative disorder
     Dosage: UNK, CYCLICAL; R-EPOCH REGIMEN; RECEIVED 4 CYCLES
     Route: 065
  17. GEMCITABINE [Suspect]
     Active Substance: GEMCITABINE
     Indication: Post transplant lymphoproliferative disorder
     Dosage: UNK
     Route: 065
  18. OBINUTUZUMAB [Suspect]
     Active Substance: OBINUTUZUMAB
     Indication: Post transplant lymphoproliferative disorder
     Dosage: UNK
     Route: 065

REACTIONS (6)
  - Post transplant lymphoproliferative disorder [Recovered/Resolved]
  - Thrombocytopenia [Unknown]
  - Escherichia bacteraemia [Unknown]
  - Disease progression [Unknown]
  - Drug ineffective [Unknown]
  - Off label use [Unknown]
